FAERS Safety Report 24539481 (Version 1)
Quarter: 2024Q4

REPORT INFORMATION
  Report Type: Spontaneous
  Country: US (occurrence: None)
  Receive Date: 20241022
  Receipt Date: 20241022
  Transmission Date: 20250115
  Serious: No
  Sender: Public
  Company Number: None

PATIENT
  Sex: Female

DRUGS (1)
  1. REMODULIN [Suspect]
     Active Substance: TREPROSTINIL
     Indication: Pulmonary arterial hypertension
     Dosage: OTHER FREQUENCY : CONTINUOUS;?
     Route: 042
     Dates: start: 202201

REACTIONS (7)
  - Arthralgia [None]
  - Arthralgia [None]
  - Dizziness [None]
  - Device malfunction [None]
  - Device computer issue [None]
  - Device power source issue [None]
  - Device infusion issue [None]
